FAERS Safety Report 13175488 (Version 1)
Quarter: 2017Q1

REPORT INFORMATION
  Report Type: Spontaneous
  Country: US (occurrence: US)
  Receive Date: 20170131
  Receipt Date: 20170131
  Transmission Date: 20170428
  Serious: Yes (Hospitalization, Other)
  Sender: FDA-Public Use
  Company Number: None

PATIENT
  Age: 74 Year
  Sex: Female
  Weight: 63 kg

DRUGS (5)
  1. TERBINAFINE HCL 250MG [Suspect]
     Active Substance: TERBINAFINE HYDROCHLORIDE
     Indication: ONYCHOMYCOSIS
     Dosage: ?          QUANTITY:1 TABLET(S);?
     Route: 048
     Dates: start: 20160711, end: 20160805
  2. MULTIVITAMIN [Concomitant]
     Active Substance: VITAMINS
  3. BABY ASPIRIN [Concomitant]
     Active Substance: ASPIRIN
  4. METRONIDAZOLE. [Concomitant]
     Active Substance: METRONIDAZOLE
  5. CYPROFLOXACIN HCL [Concomitant]

REACTIONS (10)
  - Alanine aminotransferase increased [None]
  - Blood bilirubin increased [None]
  - Malaise [None]
  - Jaundice [None]
  - Aspartate aminotransferase increased [None]
  - Nausea [None]
  - Fatigue [None]
  - Chromaturia [None]
  - Pain [None]
  - Headache [None]

NARRATIVE: CASE EVENT DATE: 20160805
